FAERS Safety Report 9742637 (Version 2)
Quarter: 2015Q3

REPORT INFORMATION
  Report Type: Spontaneous
  Country: US (occurrence: US)
  Receive Date: 20131210
  Receipt Date: 20150804
  Transmission Date: 20151125
  Serious: No
  Sender: FDA-Public Use
  Company Number: US-GILEAD-2009-0025249

PATIENT
  Age: 73 Year
  Sex: Male

DRUGS (14)
  1. WARFARIN [Concomitant]
     Active Substance: WARFARIN
  2. NICOTINIC ACID/ASCORBIC ACID/CYANOCOBALAMIN/PYRIDOXINE/FOLIC ACID/PANTOTHENIC ACID/RIBOFLAVIN/THIAMI [Concomitant]
  3. FUROSEMIDE. [Concomitant]
     Active Substance: FUROSEMIDE
  4. LETAIRIS [Suspect]
     Active Substance: AMBRISENTAN
     Indication: PULMONARY ARTERIAL HYPERTENSION
     Route: 048
     Dates: start: 20090506
  5. GLIPIZIDE. [Concomitant]
     Active Substance: GLIPIZIDE
  6. CRESTOR [Concomitant]
     Active Substance: ROSUVASTATIN CALCIUM
  7. FISH OIL [Concomitant]
     Active Substance: FISH OIL
  8. DIGOXIN. [Concomitant]
     Active Substance: DIGOXIN
  9. ASPIRIN. [Concomitant]
     Active Substance: ASPIRIN
  10. TRICOR [Concomitant]
     Active Substance: FENOFIBRATE
  11. NIASPAN [Concomitant]
     Active Substance: NIACIN
  12. SPIRONOLACTONE. [Concomitant]
     Active Substance: SPIRONOLACTONE
  13. CARVEDIOL [Concomitant]
     Active Substance: CARVEDILOL
  14. METFORMIN [Concomitant]
     Active Substance: METFORMIN HYDROCHLORIDE

REACTIONS (1)
  - Red blood cell count decreased [Not Recovered/Not Resolved]

NARRATIVE: CASE EVENT DATE: 20091015
